FAERS Safety Report 4876359-8 (Version None)
Quarter: 2006Q1

REPORT INFORMATION
  Report Type: 
  Country: None (occurrence: None)
  Receive Date: 20060106
  Receipt Date: 20051222
  Transmission Date: 20060701
  Serious: Yes (Hospitalization)
  Sender: FDA-Public Use
  Company Number: 33475

PATIENT
  Age: 69 Year
  Sex: Female

DRUGS (5)
  1. TRAVATAN [Suspect]
     Indication: GLAUCOMA
     Dosage: OPHT
     Route: 047
     Dates: start: 20051116, end: 20051120
  2. DIGITOXIN TAB [Concomitant]
  3. ANANOLOL [Concomitant]
  4. BENAPIRIL [Concomitant]
  5. ASPIRIN [Concomitant]

REACTIONS (4)
  - CORNEAL DEFECT [None]
  - GLAUCOMA [None]
  - HYPHAEMA [None]
  - INTRAOCULAR PRESSURE INCREASED [None]
